FAERS Safety Report 6895983-4 (Version None)
Quarter: 2010Q3

REPORT INFORMATION
  Report Type: 
  Country: None (occurrence: None)
  Receive Date: 20100802
  Receipt Date: 20100729
  Transmission Date: 20110219
  Serious: Yes (Hospitalization, Other)
  Sender: FDA-Public Use
  Company Number: SE-ROXANE LABORATORIES, INC.-2010-RO-00940RO

PATIENT
  Age: 61 Year
  Sex: Female

DRUGS (3)
  1. LITHIUM CARBONATE [Suspect]
  2. PENICILLIN [Suspect]
     Indication: TONSILLITIS
  3. NSAIDS [Suspect]
     Indication: TONSILLITIS

REACTIONS (3)
  - BLOOD CREATININE INCREASED [None]
  - SINUS BRADYCARDIA [None]
  - THERAPEUTIC AGENT TOXICITY [None]
